FAERS Safety Report 25117779 (Version 2)
Quarter: 2025Q4

REPORT INFORMATION
  Report Type: Spontaneous
  Country: US (occurrence: US)
  Receive Date: 20250325
  Receipt Date: 20251203
  Transmission Date: 20260118
  Serious: Yes (Death, Hospitalization)
  Sender: MYLAN
  Company Number: US-MYLANLABS-2025M1025533

PATIENT
  Age: 21 Year
  Sex: Female

DRUGS (4)
  1. METFORMIN HYDROCHLORIDE [Suspect]
     Active Substance: METFORMIN HYDROCHLORIDE
     Indication: Product used for unknown indication
     Dosage: UNK, INGESTION OF PILLS FROM TWO UNLABELED CONTAINERS LATER IDENTIFIED AS METFORMIN
  2. METFORMIN HYDROCHLORIDE [Suspect]
     Active Substance: METFORMIN HYDROCHLORIDE
     Dosage: UNK, INGESTION OF PILLS FROM TWO UNLABELED CONTAINERS LATER IDENTIFIED AS METFORMIN
     Route: 048
  3. METFORMIN HYDROCHLORIDE [Suspect]
     Active Substance: METFORMIN HYDROCHLORIDE
     Dosage: UNK, INGESTION OF PILLS FROM TWO UNLABELED CONTAINERS LATER IDENTIFIED AS METFORMIN
     Route: 048
  4. METFORMIN HYDROCHLORIDE [Suspect]
     Active Substance: METFORMIN HYDROCHLORIDE
     Dosage: UNK, INGESTION OF PILLS FROM TWO UNLABELED CONTAINERS LATER IDENTIFIED AS METFORMIN

REACTIONS (8)
  - Acidosis [Fatal]
  - Shock [Fatal]
  - Cardiac arrest [Fatal]
  - Pulseless electrical activity [Fatal]
  - Completed suicide [Fatal]
  - Intentional overdose [Fatal]
  - Intentional product misuse [Unknown]
  - Hypoglycaemia [Unknown]
